FAERS Safety Report 23821084 (Version 1)
Quarter: 2024Q2

REPORT INFORMATION
  Report Type: Spontaneous
  Country: AR (occurrence: AR)
  Receive Date: 20240506
  Receipt Date: 20240506
  Transmission Date: 20240716
  Serious: Yes (Hospitalization, Other)
  Sender: FDA-Public Use
  Company Number: AR-SLATERUN-2024SRLIT00048

PATIENT
  Age: 68 Year
  Sex: Female

DRUGS (3)
  1. IBUPROFEN [Suspect]
     Active Substance: IBUPROFEN
     Indication: Headache
     Route: 048
  2. FENOFIBRATE [Concomitant]
     Active Substance: FENOFIBRATE
     Indication: Product used for unknown indication
     Route: 065
  3. ACETAMINOPHEN [Concomitant]
     Active Substance: ACETAMINOPHEN
     Indication: Headache
     Route: 065

REACTIONS (1)
  - Orbital compartment syndrome [Recovering/Resolving]
